FAERS Safety Report 6651898-8 (Version None)
Quarter: 2010Q1

REPORT INFORMATION
  Report Type: 
  Country: None (occurrence: None)
  Receive Date: 20100323
  Receipt Date: 20100308
  Transmission Date: 20100710
  Serious: Yes (Hospitalization)
  Sender: FDA-Public Use
  Company Number: 2010000806

PATIENT
  Age: 70 Year
  Sex: Male

DRUGS (16)
  1. ERLOTINIB (ERLOTINIB) (TABLET) (ERLOTINIB) [Suspect]
     Indication: NON-SMALL CELL LUNG CANCER
     Dosage: 150 MG, ORAL
     Route: 048
     Dates: start: 20080618
  2. PEMETREXED [Suspect]
     Indication: NON-SMALL CELL LUNG CANCER
     Dosage: 500 MG/M2, Q3W;
     Dates: start: 20080618
  3. FOLIC ACID [Concomitant]
  4. VITAMIN B12 [Concomitant]
  5. DEXAMETHASONE [Concomitant]
  6. CIPROFLOXACIN HCL [Concomitant]
  7. SANDOCAL D [Concomitant]
  8. ASPIRIN [Concomitant]
  9. DELIX PLUS (SALUTEC) [Concomitant]
  10. BISOPROLOL FUMARATE [Concomitant]
  11. PANTOPRAZOLE SODIUM [Concomitant]
  12. ENOXAPARIN SODIUM [Concomitant]
  13. SPIRIVA [Concomitant]
  14. PREDNISOLONE [Concomitant]
  15. SULTANOL (SALBUTAMOL) [Concomitant]
  16. VIANI (SERETIDE MITE) [Concomitant]

REACTIONS (4)
  - ANAEMIA [None]
  - DYSPNOEA AT REST [None]
  - LEUKOPENIA [None]
  - THROMBOCYTOPENIA [None]
